FAERS Safety Report 7935638 (Version 2)
Quarter: 2014Q2

REPORT INFORMATION
  Report Type: Report from Study
  Country: US (occurrence: US)
  Receive Date: 20110509
  Receipt Date: 20140401
  Transmission Date: 20141212
  Serious: Yes (Other)
  Sender: FDA-Public Use
  Company Number: US-ALEXION-A201000425

PATIENT
  Sex: Male

DRUGS (8)
  1. SOLIRIS [Suspect]
  2. RESTORIL                           /00393701/ [Concomitant]
     Indication: SLEEP DISORDER
     Dosage: 30 MG, QD (QHS)
     Route: 048
  3. VITAMIN D                          /00107901/ [Concomitant]
     Dosage: 50000 IU, Q WEEK
     Route: 048
  4. IRON [Concomitant]
     Dosage: 1, QD
     Route: 048
  5. PREDNISONE [Concomitant]
     Indication: PAROXYSMAL NOCTURNAL HAEMOGLOBINURIA
     Dosage: 10 MG, QD
     Route: 048
  6. PRILOSEC                           /00661201/ [Concomitant]
     Dosage: 40 MG, QD
     Route: 048
  7. LANTUS [Concomitant]
     Indication: DIABETES MELLITUS
     Dosage: 44 IU, QD (BEFORE BREAKFAST)
     Route: 058
  8. HUMALOG                            /00030501/ [Concomitant]
     Indication: DIABETES MELLITUS
     Dosage: UNK
     Route: 058

REACTIONS (8)
  - Cardiac murmur [Unknown]
  - Hip arthroplasty [Unknown]
  - Myelofibrosis [Unknown]
  - Haemoglobinuria [Unknown]
  - Feeling abnormal [Unknown]
  - Abdominal pain [Unknown]
  - Dysphagia [Unknown]
  - Fatigue [Unknown]
